FAERS Safety Report 9849123 (Version 1)
Quarter: 2013Q4

REPORT INFORMATION
  Report Type: Spontaneous
  Country: US (occurrence: None)
  Receive Date: 20131224
  Receipt Date: 20131224
  Transmission Date: 20140711
  Serious: Yes (Other)
  Sender: FDA-Public Use
  Company Number: PHEH2013US013984

PATIENT
  Age: 50 Year
  Sex: Female

DRUGS (6)
  1. MYFORTIC (MYCOPHENOLIC ACID) TABLET [Suspect]
     Dosage: ( TWO TIMES A DAY)
     Dates: start: 200801
  2. NEORAL (CICLOSPORIN) [Concomitant]
  3. PROGRAF (TACROLIMUS) [Concomitant]
  4. HECTOROL (DOXERCALCIFEROL) [Concomitant]
  5. PHOSLO (CALCIUM ACETATE) GEL CAPSULES [Concomitant]
  6. FOSRENOL (LANTHANUM CARBONATE) [Concomitant]

REACTIONS (1)
  - Herpes zoster [None]
